FAERS Safety Report 24525371 (Version 1)
Quarter: 2024Q4

REPORT INFORMATION
  Report Type: Spontaneous
  Country: US (occurrence: US)
  Receive Date: 20241019
  Receipt Date: 20241019
  Transmission Date: 20250114
  Serious: No
  Sender: LGM PHARMA SOLUTIONS, LLC
  Company Number: US-LGM Pharma Solutions, LLC-2163367

PATIENT
  Age: 69 Year
  Sex: Male

DRUGS (11)
  1. CHENODAL [Suspect]
     Active Substance: CHENODIOL
     Indication: Lysosomal storage disorder
     Dates: start: 20110223
  2. TUMS [Concomitant]
     Active Substance: CALCIUM CARBONATE
  3. FOLIC ACID [Concomitant]
     Active Substance: FOLIC ACID
  4. ZOLOFT [Concomitant]
     Active Substance: SERTRALINE HYDROCHLORIDE
  5. METFORMIN [Concomitant]
     Active Substance: METFORMIN HYDROCHLORIDE
  6. IMODIUM [Concomitant]
     Active Substance: LOPERAMIDE HYDROCHLORIDE
  7. SYNTHROID [Concomitant]
     Active Substance: LEVOTHYROXINE SODIUM
  8. CALCIUM CARBONATE WITH VITAMIN D (CHOLECALCIFEROL) [Concomitant]
     Active Substance: CALCIUM CARBONATE\CHOLECALCIFEROL
  9. ASPIRIN [Concomitant]
     Active Substance: ASPIRIN
  10. LOPRESSOR [Concomitant]
     Active Substance: METOPROLOL TARTRATE
  11. TRILEPTAL [Concomitant]
     Active Substance: OXCARBAZEPINE

REACTIONS (1)
  - Hypercholesterolaemia [Unknown]
